FAERS Safety Report 8480852-9 (Version None)
Quarter: 2012Q2

REPORT INFORMATION
  Report Type: 
  Country: None (occurrence: None)
  Receive Date: 20120626
  Receipt Date: 20120626
  Transmission Date: 20120825
  Serious: No
  Sender: FDA-Public Use
  Company Number: None

PATIENT
  Age: 72 Year
  Sex: Female

DRUGS (7)
  1. ONDANSETRON [Concomitant]
  2. LACTULOSE [Concomitant]
  3. DEXAMETHASONE [Concomitant]
  4. HYDROMORPHONE HCL [Concomitant]
  5. REVLIMID [Suspect]
     Indication: MULTIPLE MYELOMA
     Dosage: 25 MG X 21/28DAYS BY MOUTH
     Route: 048
     Dates: start: 20120528, end: 20120603
  6. OXYBUTYNIN [Concomitant]
  7. NORCO [Concomitant]

REACTIONS (2)
  - PRURITUS [None]
  - RASH [None]
